FAERS Safety Report 6304550-2 (Version None)
Quarter: 2009Q3

REPORT INFORMATION
  Report Type: 
  Country: None (occurrence: None)
  Receive Date: 20090811
  Receipt Date: 20090805
  Transmission Date: 20100115
  Serious: Yes (Other)
  Sender: FDA-Public Use
  Company Number: JP-WYE-H09756309

PATIENT
  Age: 40 Year
  Sex: Female

DRUGS (1)
  1. ZOSYN [Suspect]
     Indication: PYELONEPHRITIS
     Dosage: 4.5 GRAMS, FREQUENCY UNKNOWN
     Route: 042
     Dates: start: 20090523, end: 20090523

REACTIONS (3)
  - COUGH [None]
  - EYELID OEDEMA [None]
  - HYPERSENSITIVITY [None]
